FAERS Safety Report 8892185 (Version 2)
Quarter: 2012Q4

REPORT INFORMATION
  Report Type: Spontaneous
  Country: US (occurrence: None)
  Receive Date: 20121031
  Receipt Date: 20121121
  Transmission Date: 20130627
  Serious: Yes (Death)
  Sender: FDA-Public Use
  Company Number: UTC-024592

PATIENT
  Age: 67 Year
  Sex: Female

DRUGS (6)
  1. REMODULIN (2.5 MILLIGRAM/MILLILITERS, INJECTION FOR INFUSION) (TREPROSTINIL SODIUM) [Suspect]
     Indication: CHRONIC PULMONARY HEART DISEASE
     Dosage: 7.2 ug/kg (0.005 ug/kg, 1 in 1 min), intravenous drip
     Route: 041
     Dates: start: 20100707
  2. REMODULIN (2.5 MILLIGRAM/MILLILITERS, INJECTION FOR INFUSION) (TREPROSTINIL SODIUM) [Suspect]
     Indication: PRIMARY PULMONARY HYPERTENSION
     Dosage: 7.2 ug/kg (0.005 ug/kg, 1 in 1 min), intravenous drip
     Route: 041
     Dates: start: 20100707
  3. REMODULIN (2.5 MILLIGRAM/MILLILITERS, INJECTION FOR INFUSION) (TREPROSTINIL SODIUM) [Suspect]
     Indication: CHRONIC PULMONARY HEART DISEASE
     Dosage: 7.2 ug/kg (0.005 ug/kg, 1 in 1 min), intravenous drip
     Route: 041
     Dates: start: 20120304, end: 2012
  4. REMODULIN (2.5 MILLIGRAM/MILLILITERS, INJECTION FOR INFUSION) (TREPROSTINIL SODIUM) [Suspect]
     Indication: PRIMARY PULMONARY HYPERTENSION
     Dosage: 7.2 ug/kg (0.005 ug/kg, 1 in 1 min), intravenous drip
     Route: 041
     Dates: start: 20120304, end: 2012
  5. REMODULIN (2.5 MILLIGRAM/MILLILITERS, INJECTION FOR INFUSION) (TREPROSTINIL SODIUM) [Suspect]
     Indication: CHRONIC PULMONARY HEART DISEASE
     Dosage: 7.2 ug/kg (0.005 ug/kg, 1 in 1
     Route: 041
     Dates: start: 201002, end: 2012
  6. REMODULIN (2.5 MILLIGRAM/MILLILITERS, INJECTION FOR INFUSION) (TREPROSTINIL SODIUM) [Suspect]
     Indication: PRIMARY PULMONARY HYPERTENSION
     Dosage: 7.2 ug/kg (0.005 ug/kg, 1 in 1
     Route: 041
     Dates: start: 201002, end: 2012

REACTIONS (1)
  - Death [None]
